FAERS Safety Report 10402086 (Version 1)
Quarter: 2014Q1

REPORT INFORMATION
  Report Type: Spontaneous
  Country: US (occurrence: None)
  Receive Date: 20130815
  Receipt Date: 20130815
  Transmission Date: 20141002
  Serious: Yes (Other)
  Sender: FDA-Public Use
  Company Number: ADR-2012-02035

PATIENT
  Age: 19 Year
  Sex: Female

DRUGS (4)
  1. BACLOFEN INTRATHECAL 2000 MCG/ML (CANGENE) [Suspect]
     Indication: MUSCLE SPASTICITY
  2. CLONIDINE [Concomitant]
  3. BUPIVACAINE [Concomitant]
  4. PRIALT (ZICONITIDE, SNX-111) [Concomitant]

REACTIONS (3)
  - Muscle spasms [None]
  - Tachycardia [None]
  - Underdose [None]
